FAERS Safety Report 7464883-3 (Version None)
Quarter: 2011Q2

REPORT INFORMATION
  Report Type: 
  Country: None (occurrence: None)
  Receive Date: 20110509
  Receipt Date: 20110420
  Transmission Date: 20111010
  Serious: Yes (Hospitalization)
  Sender: FDA-Public Use
  Company Number: US-BAYER-201037508NA

PATIENT
  Age: 24 Year
  Sex: Female
  Weight: 44.444 kg

DRUGS (7)
  1. DROSPIRENONE AND ETHINYL ESTRADIOL [Suspect]
     Indication: PRODUCT USED FOR UNKNOWN INDICATION
     Route: 048
     Dates: start: 20061129
  2. YASMIN [Suspect]
     Indication: PRODUCT USED FOR UNKNOWN INDICATION
     Route: 048
     Dates: start: 20061129
  3. SYNTHROID [Concomitant]
     Indication: HYPOTHYROIDISM
     Dosage: UNK
     Dates: start: 19990101
  4. PRENATAL VITAMINS [Concomitant]
  5. YAZ [Suspect]
     Indication: ORAL CONTRACEPTION
     Dosage: UNK
     Route: 048
     Dates: start: 20061129, end: 20091224
  6. ANTIEMETICS AND ANTINAUSEANTS [Concomitant]
  7. FOLIC ACID [Concomitant]
     Dosage: 800 UNK, UNK

REACTIONS (5)
  - GALLBLADDER INJURY [None]
  - SCAR [None]
  - PAIN [None]
  - CHOLELITHIASIS [None]
  - CHOLECYSTITIS [None]
